FAERS Safety Report 5381709-2 (Version None)
Quarter: 2007Q3

REPORT INFORMATION
  Report Type: 
  Country: None (occurrence: None)
  Receive Date: 20070709
  Receipt Date: 20070627
  Transmission Date: 20080115
  Serious: Yes (Hospitalization, Other)
  Sender: FDA-Public Use
  Company Number: PHBS2007AT03340

PATIENT
  Age: 75 Year
  Sex: Female
  Weight: 82 kg

DRUGS (7)
  1. STALEVO 100 [Suspect]
     Indication: PARKINSON'S DISEASE
     Dosage: 150 MG, TID
     Route: 065
     Dates: start: 20040820
  2. STALEVO 100 [Suspect]
     Dosage: 50 MG, QD
     Route: 048
     Dates: start: 20070501, end: 20070501
  3. MADOPAR [Suspect]
     Dosage: 100 MG, QD
     Route: 065
  4. MADOPAR [Suspect]
     Route: 065
  5. XANOR [Suspect]
     Dosage: 0.5 DF, QD
     Route: 065
  6. TEBONIN [Suspect]
     Dosage: 1 DF, QD
     Route: 065
  7. HOFCOMANT [Suspect]
     Dosage: 1 DF, BID
     Route: 065

REACTIONS (7)
  - COLITIS [None]
  - DIARRHOEA [None]
  - DIVERTICULUM [None]
  - EATING DISORDER [None]
  - GENERAL PHYSICAL CONDITION ABNORMAL [None]
  - HALLUCINATION [None]
  - ULCER [None]
